FAERS Safety Report 5053278-8 (Version None)
Quarter: 2006Q3

REPORT INFORMATION
  Report Type: 
  Country: None (occurrence: None)
  Receive Date: 20060712
  Receipt Date: 20060626
  Transmission Date: 20061208
  Serious: Yes (Hospitalization)
  Sender: FDA-Public Use
  Company Number: DSA_28226_2006

PATIENT
  Age: 69 Year
  Sex: Male

DRUGS (3)
  1. ATIVAN [Suspect]
     Indication: ANXIETY
     Dosage: 1 MG 5XD PO
     Route: 048
  2. ATIVAN [Suspect]
     Indication: ANXIETY
     Dosage: 10 MG Q DAY PO
     Route: 048
     Dates: start: 19760101
  3. PROPRANOLOL [Concomitant]

REACTIONS (2)
  - CHOLECYSTITIS ACUTE [None]
  - CHOLELITHIASIS [None]
